FAERS Safety Report 6104793-7 (Version None)
Quarter: 2009Q1

REPORT INFORMATION
  Report Type: 
  Country: None (occurrence: None)
  Receive Date: 20090306
  Receipt Date: 20090223
  Transmission Date: 20090719
  Serious: Yes (Hospitalization, Other)
  Sender: FDA-Public Use
  Company Number: PHHY2009FR06746

PATIENT
  Sex: Male

DRUGS (3)
  1. GLEEVEC [Suspect]
     Dosage: UNK
     Dates: start: 20030101, end: 20080329
  2. SPRYCEL [Suspect]
     Dosage: 50 MG 2 DAILY DOSES
     Route: 048
     Dates: start: 20080330, end: 20080701
  3. SPRYCEL [Suspect]
     Dosage: 40 MG, 2 DAILY DOSES

REACTIONS (8)
  - ATRIAL FIBRILLATION [None]
  - CARDIAC FAILURE [None]
  - CHROMOSOME ANALYSIS ABNORMAL [None]
  - MYELOCYTOSIS [None]
  - PANNICULITIS [None]
  - PLEURAL EFFUSION [None]
  - SKIN ULCER [None]
  - THROMBOCYTOPENIA [None]
